FAERS Safety Report 11968507 (Version 1)
Quarter: 2016Q1

REPORT INFORMATION
  Report Type: Spontaneous
  Country: US (occurrence: US)
  Receive Date: 20160128
  Receipt Date: 20160128
  Transmission Date: 20160526
  Serious: Yes (Other)
  Sender: FDA-Public Use
  Company Number: US-ROCHE-1699524

PATIENT

DRUGS (1)
  1. XOLAIR [Suspect]
     Active Substance: OMALIZUMAB
     Indication: HYPER IGE SYNDROME
     Route: 065

REACTIONS (3)
  - Blood immunoglobulin E increased [Not Recovered/Not Resolved]
  - Pancytopenia [Not Recovered/Not Resolved]
  - Drug resistance [Not Recovered/Not Resolved]
